FAERS Safety Report 7764847-6 (Version None)
Quarter: 2011Q3

REPORT INFORMATION
  Report Type: 
  Country: None (occurrence: None)
  Receive Date: 20110921
  Receipt Date: 20110916
  Transmission Date: 20111222
  Serious: Yes (Death, Hospitalization, Other)
  Sender: FDA-Public Use
  Company Number: FR-PFIZER INC-2011087659

PATIENT
  Age: 78 Year
  Sex: Male
  Weight: 86 kg

DRUGS (8)
  1. PERINDOPRIL ERBUMINE [Concomitant]
     Indication: HYPERTENSION
     Dosage: 2.5 MG, 1X/DAY
     Route: 048
     Dates: start: 20050101
  2. TORISEL [Suspect]
     Dosage: 175 MG, SINGLE
     Route: 042
     Dates: start: 20101028, end: 20101028
  3. TORISEL [Suspect]
     Dosage: 75 MG, SINGLE
     Route: 042
     Dates: start: 20101126, end: 20101126
  4. TORISEL [Suspect]
     Dosage: 75 MG, SINGLE
     Route: 042
     Dates: start: 20110228, end: 20110228
  5. REPAGLINIDE [Concomitant]
     Indication: TYPE 2 DIABETES MELLITUS
     Dosage: 6 MG/DAY IN 3 INTAKES
     Route: 048
     Dates: start: 20050101
  6. TORISEL [Suspect]
     Indication: MANTLE CELL LYMPHOMA
     Dosage: 175 MG, SINGLE
     Route: 042
     Dates: start: 20101021, end: 20101021
  7. TORISEL [Suspect]
     Dosage: 75 MG, SINGLE
     Route: 042
     Dates: start: 20101119, end: 20101119
  8. TORISEL [Suspect]
     Dosage: 175 MG, SINGLE
     Route: 042
     Dates: start: 20101112, end: 20101112

REACTIONS (9)
  - ASTHENIA [None]
  - DIABETIC FOOT [None]
  - ANGIOPATHY [None]
  - DISEASE PROGRESSION [None]
  - DIABETES MELLITUS [None]
  - CELLULITIS [None]
  - OSTEITIS [None]
  - MANTLE CELL LYMPHOMA [None]
  - PYREXIA [None]
